FAERS Safety Report 15525470 (Version 3)
Quarter: 2019Q2

REPORT INFORMATION
  Report Type: Report from Study
  Country: US (occurrence: US)
  Receive Date: 20181018
  Receipt Date: 20190409
  Transmission Date: 20190711
  Serious: No
  Sender: FDA-Public Use
  Company Number: PHEH2018US042884

PATIENT
  Sex: Male

DRUGS (1)
  1. COSENTYX [Suspect]
     Active Substance: SECUKINUMAB
     Indication: PSORIASIS
     Dosage: 300 MG, QMO (ONCE EVERY 4 WEEKS)
     Route: 058
     Dates: start: 20180520

REACTIONS (10)
  - Rash [Unknown]
  - Muscle spasms [Recovered/Resolved]
  - Pruritus [Unknown]
  - Formication [Unknown]
  - Cardiac disorder [Not Recovered/Not Resolved]
  - Drug ineffective [Unknown]
  - Scratch [Unknown]
  - Mobility decreased [Unknown]
  - Therapeutic response decreased [Unknown]
  - Peripheral vascular disorder [Unknown]
